FAERS Safety Report 9548452 (Version 2)
Quarter: 2013Q4

REPORT INFORMATION
  Report Type: Spontaneous
  Country: US (occurrence: US)
  Receive Date: 20130924
  Receipt Date: 20131002
  Transmission Date: 20140711
  Serious: No
  Sender: FDA-Public Use
  Company Number: US-PFIZER INC-2013272699

PATIENT
  Age: 62 Year
  Sex: Male

DRUGS (7)
  1. CHANTIX [Suspect]
     Indication: SMOKING CESSATION THERAPY
     Dosage: UNK
  2. NICOTINE [Suspect]
     Dosage: UNK
  3. DIVALPROEX SODIUM [Concomitant]
     Indication: BIPOLAR DISORDER
     Dosage: 15 MG (3 TABLETS OF 5 MG), DAILY
  4. BUPROPION [Concomitant]
     Indication: BIPOLAR DISORDER
     Dosage: 300 MG, DAILY
  5. CLONAZEPAM [Concomitant]
     Indication: ANXIETY
     Dosage: 20 MG, 2X/DAY
  6. CLONAZEPAM [Concomitant]
     Indication: BIPOLAR DISORDER
  7. QUETIAPINE FUMARATE [Concomitant]
     Indication: BIPOLAR DISORDER
     Dosage: 400 MG, DAILY

REACTIONS (2)
  - Abdominal discomfort [Recovered/Resolved]
  - Dependence [Unknown]
